FAERS Safety Report 6540455-X (Version None)
Quarter: 2010Q1

REPORT INFORMATION
  Report Type: 
  Country: None (occurrence: None)
  Receive Date: 20100113
  Receipt Date: 20100107
  Transmission Date: 20100710
  Serious: Yes (Other)
  Sender: FDA-Public Use
  Company Number: GB-001290

PATIENT
  Age: 55 Year
  Sex: Male

DRUGS (13)
  1. NUTROPIN [Suspect]
     Indication: HYPOPITUITARISM
     Dosage: SUBCUTANEOUS
     Route: 058
  2. NEBIDO [Suspect]
     Indication: DRUG USE FOR UNKNOWN INDICATION
     Dates: start: 20071001
  3. ATORVASTATIN [Concomitant]
  4. CLOPIDOGREL [Concomitant]
  5. FENOFIBRATE [Concomitant]
  6. METFORMIN HYDROCHLORIDE [Concomitant]
  7. HEPARIN [Concomitant]
  8. INSULIN ASPART [Concomitant]
  9. ROSIGLITAZONE MALEATE [Concomitant]
  10. ALBUTEROL [Concomitant]
  11. SERETIDE [Concomitant]
  12. VALSARTAN [Concomitant]
  13. VARDENAFIL [Concomitant]

REACTIONS (4)
  - BLOOD PRESSURE INCREASED [None]
  - BURNING SENSATION [None]
  - DYSGEUSIA [None]
  - HYPERHIDROSIS [None]
